FAERS Safety Report 8399682 (Version 4)
Quarter: 2012Q4

REPORT INFORMATION
  Report Type: Report from Study
  Country: US (occurrence: None)
  Receive Date: 20120131
  Receipt Date: 20121106
  Transmission Date: 20130627
  Serious: Yes (Death, Hospitalization)
  Sender: FDA-Public Use
  Company Number: 2011PROUSA00920

PATIENT
  Age: 69 Year
  Sex: Male
  Weight: 92.6 kg

DRUGS (3)
  1. PROVENGE [Suspect]
     Indication: PROSTATE CANCER METASTATIC
     Dosage: 250 ML, SINGLE, INTRAVENOUS; 250 ML, SINGLE, INTRAVENOUS
     Route: 042
     Dates: start: 20111117, end: 20111117
  2. PROVENGE [Suspect]
     Indication: PROSTATE CANCER METASTATIC
     Dosage: 250 ML, SINGLE, INTRAVENOUS; 250 ML, SINGLE, INTRAVENOUS
     Route: 042
     Dates: start: 20111208, end: 20111208
  3. PROVENGE [Suspect]

REACTIONS (7)
  - Acute respiratory failure [None]
  - Atelectasis [None]
  - Metastases to lung [None]
  - Obstructive airways disorder [None]
  - Respiratory arrest [None]
  - Pneumothorax [None]
  - Disease progression [None]
